FAERS Safety Report 12373601 (Version 1)
Quarter: 2016Q2

REPORT INFORMATION
  Report Type: Spontaneous
  Country: DK (occurrence: DK)
  Receive Date: 20160516
  Receipt Date: 20160516
  Transmission Date: 20160815
  Serious: Yes (Other)
  Sender: FDA-Public Use
  Company Number: PHHY2016DK066953

PATIENT
  Age: 73 Year
  Sex: Male

DRUGS (1)
  1. ZOLEDRONATE [Suspect]
     Active Substance: ZOLEDRONIC ACID
     Indication: RENAL CANCER
     Dosage: UNK (HIGH DOSE)
     Route: 065

REACTIONS (2)
  - Osteonecrosis of jaw [Recovered/Resolved]
  - Product use issue [Unknown]
